FAERS Safety Report 9942039 (Version 1)
Quarter: 2014Q1

REPORT INFORMATION
  Report Type: Report from Study
  Country: US (occurrence: US)
  Receive Date: 20140303
  Receipt Date: 20140303
  Transmission Date: 20141002
  Serious: No
  Sender: FDA-Public Use
  Company Number: US-ABBVIE-13P-163-1042268-00

PATIENT
  Age: 32 Year
  Sex: Female

DRUGS (13)
  1. HUMIRA [Suspect]
     Indication: ANKYLOSING SPONDYLITIS
     Dates: start: 201209, end: 201212
  2. HUMIRA [Suspect]
     Indication: COLITIS
  3. NUCYNTA [Concomitant]
     Indication: PAIN
  4. FENTANYL PATCH [Concomitant]
     Indication: PAIN
  5. XENOFLEX [Concomitant]
     Indication: MUSCLE SPASMS
  6. PRILOSEC [Concomitant]
     Indication: GASTROOESOPHAGEAL REFLUX DISEASE
  7. CYMBALTA [Concomitant]
     Indication: FIBROMYALGIA
  8. NEXIUM [Concomitant]
     Indication: GASTROOESOPHAGEAL REFLUX DISEASE
  9. FERREX [Concomitant]
     Indication: ANAEMIA
  10. PROPRANOLOL [Concomitant]
     Indication: MIGRAINE
  11. TOPAMAX [Concomitant]
     Indication: MIGRAINE
  12. VALIUM [Concomitant]
     Indication: INSOMNIA
  13. MULTIVITAMIN [Concomitant]
     Indication: NUTRITIONAL SUPPLEMENTATION

REACTIONS (3)
  - Malaise [Not Recovered/Not Resolved]
  - Pain [Not Recovered/Not Resolved]
  - Diarrhoea [Not Recovered/Not Resolved]
